FAERS Safety Report 6501435-3 (Version None)
Quarter: 2009Q4

REPORT INFORMATION
  Report Type: 
  Country: None (occurrence: None)
  Receive Date: 20091216
  Receipt Date: 20091210
  Transmission Date: 20100525
  Serious: Yes (Hospitalization)
  Sender: FDA-Public Use
  Company Number: IT-BAYER-200941601GPV

PATIENT
  Age: 25 Year
  Sex: Male

DRUGS (3)
  1. ASPIRIN [Suspect]
     Indication: DRUG USE FOR UNKNOWN INDICATION
     Dosage: TOTAL DAILY DOSE: 500 MG  UNIT DOSE: 500 MG
     Route: 048
     Dates: start: 20091122, end: 20091124
  2. TACHIPIRINA [Suspect]
     Indication: PYREXIA
     Route: 048
     Dates: start: 20091122, end: 20091124
  3. OKI [Suspect]
     Indication: DRUG USE FOR UNKNOWN INDICATION
     Route: 048
     Dates: start: 20091122, end: 20091124

REACTIONS (1)
  - DERMATITIS BULLOUS [None]
